APPROVED DRUG PRODUCT: PREDNISONE
Active Ingredient: PREDNISONE
Strength: 10MG
Dosage Form/Route: TABLET;ORAL
Application: A210525 | Product #001
Applicant: GENEYORK PHARMACEUTICALS GROUP LLC
Approved: Dec 4, 2018 | RLD: No | RS: No | Type: DISCN